FAERS Safety Report 12008764 (Version 1)
Quarter: 2016Q1

REPORT INFORMATION
  Report Type: Report from Study
  Country: US (occurrence: US)
  Receive Date: 20160205
  Receipt Date: 20160205
  Transmission Date: 20160526
  Serious: No
  Sender: FDA-Public Use
  Company Number: US-ABBVIE-15K-163-1445407-00

PATIENT
  Sex: Female

DRUGS (1)
  1. HUMIRA [Suspect]
     Active Substance: ADALIMUMAB
     Indication: RHEUMATOID ARTHRITIS
     Route: 065
     Dates: start: 2006

REACTIONS (4)
  - Back pain [Recovering/Resolving]
  - Drug effect decreased [Unknown]
  - Fall [Recovered/Resolved]
  - Intervertebral disc displacement [Recovering/Resolving]

NARRATIVE: CASE EVENT DATE: 2015
